FAERS Safety Report 4349400-9 (Version None)
Quarter: 2004Q2

REPORT INFORMATION
  Report Type: 
  Country: None (occurrence: None)
  Receive Date: 20040428
  Receipt Date: 20040415
  Transmission Date: 20050107
  Serious: Yes (Life-Threatening, Hospitalization, Disabling)
  Sender: FDA-Public Use
  Company Number: FI-GLAXOSMITHKLINE-B0330196A

PATIENT
  Age: 53 Year
  Sex: Male

DRUGS (13)
  1. ZINACEF [Suspect]
     Indication: PROPHYLAXIS
     Dosage: 1.5G PER DAY
     Route: 042
     Dates: start: 20040406, end: 20040406
  2. PERINDOPRIL [Concomitant]
     Indication: CARDIOMYOPATHY
     Dosage: 2MG PER DAY
     Route: 048
  3. DIGOXIN [Concomitant]
     Dosage: .25MG PER DAY
     Route: 048
  4. BISOPROLOL [Concomitant]
     Dosage: 2.5MG PER DAY
     Route: 048
  5. TITSANIDIINI [Concomitant]
     Dosage: 16MG PER DAY
     Route: 048
  6. CLONAZEPAM [Concomitant]
     Dosage: 1MG PER DAY
     Route: 048
  7. FUROSEMIDE [Concomitant]
     Indication: CARDIOMYOPATHY
     Dosage: 40MG PER DAY
     Route: 048
  8. VITAMIN C [Concomitant]
     Dosage: 1G PER DAY
     Route: 048
  9. CALCIUM CARBONATE [Concomitant]
     Dosage: 2G PER DAY
     Route: 048
  10. WARFARIN SODIUM [Concomitant]
     Indication: HYPERCOAGULATION
     Route: 048
     Dates: end: 20040331
  11. ENOXAPARIN SODIUM [Concomitant]
     Dosage: 120MG PER DAY
     Route: 030
     Dates: start: 20040406
  12. TAMSULOSIN [Concomitant]
  13. LABETALOL HCL [Concomitant]
     Dosage: 10MG PER DAY
     Route: 042

REACTIONS (10)
  - ANAPHYLACTIC REACTION [None]
  - CIRCULATORY COLLAPSE [None]
  - DEPRESSED LEVEL OF CONSCIOUSNESS [None]
  - DYSPNOEA [None]
  - ELECTROCARDIOGRAM ST SEGMENT DEPRESSION [None]
  - MALAISE [None]
  - MYOCARDIAL ISCHAEMIA [None]
  - NAUSEA [None]
  - PARAESTHESIA ORAL [None]
  - TACHYCARDIA [None]
